FAERS Safety Report 5787315-X (Version None)
Quarter: 2008Q2

REPORT INFORMATION
  Report Type: 
  Country: None (occurrence: None)
  Receive Date: 20080623
  Receipt Date: 20080623
  Transmission Date: 20081010
  Serious: Yes (Life-Threatening, Hospitalization)
  Sender: FDA-Public Use
  Company Number: None

PATIENT
  Sex: Female
  Weight: 18.1439 kg

DRUGS (1)
  1. MOTRIN [Suspect]
     Indication: PYREXIA
     Dosage: 2-TSP. AS RECOMMENDED ON LABEL AS RECOMMENDED PO
     Route: 048
     Dates: start: 20031128, end: 20031129

REACTIONS (1)
  - TOXIC EPIDERMAL NECROLYSIS [None]
